FAERS Safety Report 8532813-9 (Version None)
Quarter: 2012Q3

REPORT INFORMATION
  Report Type: 
  Country: None (occurrence: None)
  Receive Date: 20120724
  Receipt Date: 20120720
  Transmission Date: 20120928
  Serious: Yes (Death, Other)
  Sender: FDA-Public Use
  Company Number: PHEH2004US08039

PATIENT
  Sex: Male

DRUGS (43)
  1. MULTI-VITAMINS [Concomitant]
     Dosage: QD
  2. NIZATIDINE [Concomitant]
  3. IMITREX [Concomitant]
  4. PAROXETINE [Concomitant]
  5. METOCLOPRAMIDE [Concomitant]
  6. ZOMETA [Suspect]
     Indication: METASTASES TO BONE
     Dosage: 4 MG, QMO
     Route: 042
     Dates: start: 20020906, end: 20040501
  7. ALLOPURINOL [Concomitant]
     Indication: GOUT
     Dosage: QD
  8. NEO-SYNEPHRINE OPHTHALMICS [Concomitant]
  9. ZOVIRAX [Concomitant]
  10. BISACODYL [Concomitant]
  11. MAGNESIUM SULFATE [Concomitant]
  12. MAGNESIUM HYDROXIDE TAB [Concomitant]
  13. ULTRACET [Concomitant]
  14. ZOMETA [Suspect]
     Dosage: UNK
  15. MYDRIACYL [Concomitant]
  16. DOCUSATE [Concomitant]
  17. MULTI-VITAMINS [Concomitant]
  18. RELISTOR [Concomitant]
  19. AMOXICILLIN [Concomitant]
     Indication: OPEN WOUND
     Dosage: 500 MG, TID
     Dates: start: 20040224
  20. NEURONTIN [Concomitant]
  21. LEXAPRO [Concomitant]
  22. FLAGYL [Concomitant]
  23. INDOMETHACIN [Concomitant]
  24. METOPROLOL SUCCINATE [Concomitant]
  25. LASIX [Concomitant]
  26. AMBIEN [Concomitant]
     Dosage: PRN
  27. TORADOL [Concomitant]
  28. CEPHALEXIN [Concomitant]
  29. AVASTIN [Concomitant]
  30. OMEPRAZOLE [Concomitant]
  31. PENICILLIN [Concomitant]
  32. OXYCODONE HCL [Concomitant]
  33. ACETAMINOPHEN [Concomitant]
  34. DIPHENHYDRAMINE HCL [Concomitant]
  35. LISINOPRIL [Concomitant]
  36. SUTENT [Concomitant]
  37. ADVIL [Concomitant]
  38. CLONAZEPAM [Concomitant]
  39. DARVOCET-N 50 [Concomitant]
  40. HEPARIN [Concomitant]
  41. KETOROLAC TROMETHAMINE [Concomitant]
  42. AMLODIPINE BESYLATE [Concomitant]
  43. VYTORIN [Concomitant]

REACTIONS (100)
  - METASTASES TO BONE [None]
  - METASTASES TO CENTRAL NERVOUS SYSTEM [None]
  - WOUND SECRETION [None]
  - ANXIETY [None]
  - WEIGHT DECREASED [None]
  - MELANOCYTIC NAEVUS [None]
  - CEREBRAL SMALL VESSEL ISCHAEMIC DISEASE [None]
  - BONE PAIN [None]
  - DYSKINESIA [None]
  - CONSTIPATION [None]
  - SEBORRHOEIC KERATOSIS [None]
  - NEOPLASM MALIGNANT [None]
  - OSTEOMYELITIS [None]
  - EMOTIONAL DISTRESS [None]
  - SEXUAL DYSFUNCTION [None]
  - TOOTH FRACTURE [None]
  - SWELLING [None]
  - OCULAR HYPERAEMIA [None]
  - VISION BLURRED [None]
  - GASTROOESOPHAGEAL REFLUX DISEASE [None]
  - EPISTAXIS [None]
  - EAR INFECTION [None]
  - INTERVERTEBRAL DISC PROTRUSION [None]
  - URINARY TRACT INFECTION [None]
  - STOMATITIS [None]
  - HYPERLIPIDAEMIA [None]
  - BONE DISORDER [None]
  - OPEN WOUND [None]
  - HEPATIC STEATOSIS [None]
  - SPLENIC GRANULOMA [None]
  - SINUS BRADYCARDIA [None]
  - HYPOTHYROIDISM [None]
  - DIZZINESS [None]
  - DEAFNESS [None]
  - PLEURAL EFFUSION [None]
  - INGUINAL HERNIA [None]
  - OSTEONECROSIS OF JAW [None]
  - DEFORMITY [None]
  - HYPOPHAGIA [None]
  - IRITIS [None]
  - ASTHENOPIA [None]
  - GRANULOMATOUS LIVER DISEASE [None]
  - DERMAL CYST [None]
  - RECTAL HAEMORRHAGE [None]
  - PERITONEAL ADHESIONS [None]
  - LEFT VENTRICULAR HYPERTROPHY [None]
  - MEMORY IMPAIRMENT [None]
  - DYSPHONIA [None]
  - AORTIC ANEURYSM [None]
  - COLON CANCER [None]
  - PROTEINURIA [None]
  - TYPE 2 DIABETES MELLITUS [None]
  - ABDOMINAL DISTENSION [None]
  - EYE IRRITATION [None]
  - MYOPIA [None]
  - FOOT FRACTURE [None]
  - ANAEMIA [None]
  - ARTHRALGIA [None]
  - NEURALGIA [None]
  - BENIGN PROSTATIC HYPERPLASIA [None]
  - LYMPHADENOPATHY MEDIASTINAL [None]
  - CONFUSIONAL STATE [None]
  - NASAL TURBINATE HYPERTROPHY [None]
  - METASTATIC RENAL CELL CARCINOMA [None]
  - PAIN [None]
  - ARTHRITIS [None]
  - SPINAL OSTEOARTHRITIS [None]
  - HAEMORRHOIDS [None]
  - MIGRAINE [None]
  - DIVERTICULUM [None]
  - CARDIAC DISORDER [None]
  - ASTHENIA [None]
  - LUNG NEOPLASM [None]
  - PERIORBITAL OEDEMA [None]
  - BASAL CELL CARCINOMA [None]
  - NASAL SEPTUM DEVIATION [None]
  - SLEEP APNOEA SYNDROME [None]
  - METASTASES TO LYMPH NODES [None]
  - MOUTH ULCERATION [None]
  - IMPAIRED HEALING [None]
  - INFECTION [None]
  - CORONARY ARTERY DISEASE [None]
  - LACRIMATION INCREASED [None]
  - GASTROENTERITIS [None]
  - GASTROENTERITIS RADIATION [None]
  - NEPHROLITHIASIS [None]
  - TYMPANIC MEMBRANE PERFORATION [None]
  - CHOLECYSTITIS CHRONIC [None]
  - GASTROINTESTINAL MOTILITY DISORDER [None]
  - NASAL OBSTRUCTION [None]
  - NEOPLASM PROGRESSION [None]
  - DECREASED INTEREST [None]
  - GENERAL PHYSICAL HEALTH DETERIORATION [None]
  - GINGIVAL DISORDER [None]
  - EYE PAIN [None]
  - PRESBYOPIA [None]
  - PARAESTHESIA [None]
  - SEBORRHOEIC DERMATITIS [None]
  - INGROWING NAIL [None]
  - GASTRIC DISORDER [None]
